FAERS Safety Report 17360633 (Version 5)
Quarter: 2021Q1

REPORT INFORMATION
  Report Type: Report from Study
  Country: CO (occurrence: CO)
  Receive Date: 20200203
  Receipt Date: 20210107
  Transmission Date: 20210419
  Serious: Yes (Hospitalization, Other)
  Sender: FDA-Public Use
  Company Number: PHHY2019CO204056

PATIENT
  Sex: Female

DRUGS (1)
  1. TYKERB [Suspect]
     Active Substance: LAPATINIB DITOSYLATE
     Indication: BREAST CANCER
     Dosage: 1000 MG, QD
     Route: 048

REACTIONS (12)
  - Illness [Unknown]
  - Malaise [Unknown]
  - Hypersensitivity [Unknown]
  - Limb injury [Unknown]
  - Metastases to central nervous system [Unknown]
  - Ingrowing nail [Unknown]
  - Diarrhoea [Unknown]
  - Nail injury [Unknown]
  - Dysstasia [Unknown]
  - Abdominal pain upper [Unknown]
  - Eating disorder [Unknown]
  - Feeling abnormal [Unknown]
